FAERS Safety Report 5560255-7 (Version None)
Quarter: 2007Q4

REPORT INFORMATION
  Report Type: 
  Country: None (occurrence: None)
  Receive Date: 20071214
  Receipt Date: 20071030
  Transmission Date: 20080405
  Serious: No
  Sender: FDA-Public Use
  Company Number: US-ABBOTT-07P-163-0423163-00

PATIENT
  Sex: Female
  Weight: 54.48 kg

DRUGS (1)
  1. HUMIRA [Suspect]
     Indication: JUVENILE ARTHRITIS
     Route: 058
     Dates: start: 20061001, end: 20070901

REACTIONS (4)
  - LIP SWELLING [None]
  - OEDEMA MOUTH [None]
  - RASH ERYTHEMATOUS [None]
  - SWELLING FACE [None]
